FAERS Safety Report 4876503-2 (Version None)
Quarter: 2005Q4

REPORT INFORMATION
  Report Type: 
  Country: None (occurrence: None)
  Receive Date: 20051206
  Receipt Date: 20051003
  Transmission Date: 20060501
  Serious: No
  Sender: FDA-Public Use
  Company Number: USA0510109796

PATIENT
  Age: 43 Year
  Sex: Female

DRUGS (4)
  1. CYMBALTA [Suspect]
     Indication: BIPOLAR DISORDER
     Dosage: 60 MG DAY
     Dates: start: 20050301
  2. KLONOPIN [Concomitant]
  3. LITHIUM [Concomitant]
  4. ESZOPICLONE [Concomitant]

REACTIONS (3)
  - DYSPNOEA [None]
  - EXERCISE TOLERANCE DECREASED [None]
  - HEART RATE INCREASED [None]
